FAERS Safety Report 4807567-X (Version None)
Quarter: 2005Q4

REPORT INFORMATION
  Report Type: 
  Country: None (occurrence: None)
  Receive Date: 20051024
  Receipt Date: 20051013
  Transmission Date: 20060501
  Serious: Yes (Other)
  Sender: FDA-Public Use
  Company Number: US-ROCHE-421279

PATIENT
  Age: 30 Year
  Sex: Female

DRUGS (6)
  1. INVIRASE [Suspect]
     Indication: DRUG USE FOR UNKNOWN INDICATION
     Route: 048
     Dates: start: 20050824, end: 20050904
  2. 3TC [Concomitant]
     Dosage: THERAPY 1- UNKNOWN UNTIL 12 JULY 2005 AND THERAPY 2-24 AUGUST UNTIL 4 SEP 2005.
     Route: 048
     Dates: end: 20050904
  3. ABC [Concomitant]
     Dosage: THERAPY 1-UNKNOWN DATE UNTIL 12 JULY 2005. THERAPY 2-24 AUG UNTIL 4 SEP 2005.
     Route: 048
     Dates: end: 20050904
  4. ATAZANAVIR [Concomitant]
     Dosage: TRADE NAME REPORTED AS ATV.
     Route: 048
     Dates: end: 20050712
  5. RITONAVIR [Concomitant]
     Dosage: THERAPY 1 UNKNOWN DATE UNTIL 12 JULY 05. THERAPY 2 24 AUGUST-14 SEPT 2005.
     Route: 048
     Dates: start: 20050824, end: 20050904
  6. AZT [Concomitant]
     Route: 048
     Dates: start: 20050824, end: 20050904

REACTIONS (3)
  - ABORTION SPONTANEOUS [None]
  - AMNIOTIC FLUID VOLUME DECREASED [None]
  - DRUG EXPOSURE DURING PREGNANCY [None]
